FAERS Safety Report 6003187-2 (Version None)
Quarter: 2008Q4

REPORT INFORMATION
  Report Type: 
  Country: None (occurrence: None)
  Receive Date: 20081212
  Receipt Date: 20081212
  Transmission Date: 20090506
  Serious: Yes (Hospitalization)
  Sender: FDA-Public Use
  Company Number: None

PATIENT
  Age: 43 Year
  Sex: Male
  Weight: 135.2 kg

DRUGS (1)
  1. ZOLPIDEM [Suspect]
     Indication: INSOMNIA
     Dosage: 50 MG ONCE PO
     Route: 048
     Dates: start: 20081208, end: 20081208

REACTIONS (2)
  - SEDATION [None]
  - UNRESPONSIVE TO STIMULI [None]
